FAERS Safety Report 8378559-1 (Version None)
Quarter: 2012Q2

REPORT INFORMATION
  Report Type: 
  Country: None (occurrence: None)
  Receive Date: 20120522
  Receipt Date: 20120518
  Transmission Date: 20120825
  Serious: Yes (Hospitalization)
  Sender: FDA-Public Use
  Company Number: CA-ABBOTT-12P-028-0935447-00

PATIENT
  Sex: Female

DRUGS (2)
  1. HUMIRA [Suspect]
     Route: 058
  2. HUMIRA [Suspect]
     Indication: CROHN'S DISEASE
     Route: 058
     Dates: start: 20100611

REACTIONS (7)
  - ABDOMINAL PAIN [None]
  - INTUSSUSCEPTION [None]
  - SUBILEUS [None]
  - CROHN'S DISEASE [None]
  - INFLAMMATION [None]
  - INCORRECT DOSE ADMINISTERED [None]
  - ABDOMINAL PAIN LOWER [None]
